FAERS Safety Report 16088201 (Version 1)
Quarter: 2019Q2

REPORT INFORMATION
  Report Type: Spontaneous
  Country: IN (occurrence: IN)
  Receive Date: 20190318
  Receipt Date: 20190318
  Transmission Date: 20190711
  Serious: Yes (Hospitalization, Disabling, Other)
  Sender: FDA-Public Use
  Company Number: None

PATIENT
  Age: 79 Year
  Sex: Male
  Weight: 60 kg

DRUGS (9)
  1. THYRONORM [Concomitant]
     Active Substance: LEVOTHYROXINE
  2. NEBISTAR [Concomitant]
  3. CREMAFFIN [Concomitant]
  4. QUITPIN [QUETIAPINE] [Suspect]
     Active Substance: QUETIAPINE
     Indication: DEMENTIA
     Dosage: ?          QUANTITY:1 TABLET(S);?
     Route: 048
  5. GELUSIL [Concomitant]
     Active Substance: ALUMINUM HYDROXIDE\DIMETHICONE\MAGNESIUM HYDROXIDE
  6. INSULIN INJECTION NOVOMIX [Concomitant]
  7. QUITPIN [QUETIAPINE] [Suspect]
     Active Substance: QUETIAPINE
     Indication: DEPRESSION
     Dosage: ?          QUANTITY:1 TABLET(S);?
     Route: 048
  8. ZOLFRESH [Concomitant]
     Active Substance: ZOLPIDEM TARTRATE
  9. AMLONG [Concomitant]

REACTIONS (2)
  - Restless legs syndrome [None]
  - Akathisia [None]

NARRATIVE: CASE EVENT DATE: 20190313
